FAERS Safety Report 6652399-3 (Version None)
Quarter: 2010Q1

REPORT INFORMATION
  Report Type: 
  Country: None (occurrence: None)
  Receive Date: 20100323
  Receipt Date: 20100308
  Transmission Date: 20100710
  Serious: Yes (Hospitalization)
  Sender: FDA-Public Use
  Company Number: 2010MB000015

PATIENT
  Age: 18 Year
  Sex: Female

DRUGS (1)
  1. MOXATAG [Suspect]
     Indication: DENTAL DISORDER PROPHYLAXIS

REACTIONS (4)
  - CORNEAL NEOVASCULARISATION [None]
  - CORNEAL PERFORATION [None]
  - CORNEAL THINNING [None]
  - TOXIC EPIDERMAL NECROLYSIS [None]
